FAERS Safety Report 9451077 (Version 7)
Quarter: 2014Q3

REPORT INFORMATION
  Report Type: Spontaneous
  Country: US (occurrence: US)
  Receive Date: 20130809
  Receipt Date: 20140828
  Transmission Date: 20150326
  Serious: Yes (Hospitalization, Other)
  Sender: FDA-Public Use
  Company Number: US-009507513-1307USA016000

PATIENT
  Sex: Male
  Weight: 106.58 kg

DRUGS (4)
  1. PROSCAR [Suspect]
     Active Substance: FINASTERIDE
     Dosage: 5 MG, DAILY
     Route: 048
     Dates: start: 20061121, end: 20110103
  2. FINASTERIDE. [Suspect]
     Active Substance: FINASTERIDE
     Indication: BENIGN PROSTATIC HYPERPLASIA
     Dosage: 5 MG, QD
     Dates: start: 20070801, end: 20110516
  3. PROSCAR [Suspect]
     Active Substance: FINASTERIDE
     Indication: BENIGN PROSTATIC HYPERPLASIA
     Dosage: 5 MG, QD
     Route: 048
     Dates: start: 20010530, end: 20061010
  4. CIALIS [Concomitant]
     Active Substance: TADALAFIL
     Indication: ERECTILE DYSFUNCTION
     Dosage: 20 MG, UNK
     Dates: start: 20040220

REACTIONS (17)
  - Carpal tunnel decompression [Unknown]
  - Haemangioma of liver [Unknown]
  - Colon operation [Unknown]
  - Depression [Not Recovered/Not Resolved]
  - Stress urinary incontinence [Unknown]
  - Radical prostatectomy [Unknown]
  - Hepatic cyst [Unknown]
  - Nerve root compression [Unknown]
  - Erectile dysfunction [Not Recovered/Not Resolved]
  - Hepatic steatosis [Unknown]
  - Anxiety [Not Recovered/Not Resolved]
  - Prostate cancer [Not Recovered/Not Resolved]
  - Large intestine polyp [Unknown]
  - Large intestine polyp [Unknown]
  - Sexual dysfunction [Not Recovered/Not Resolved]
  - Prostatism [Unknown]
  - Hypertonic bladder [Unknown]

NARRATIVE: CASE EVENT DATE: 20061121
